FAERS Safety Report 25548585 (Version 2)
Quarter: 2025Q4

REPORT INFORMATION
  Report Type: Report from Study
  Country: US (occurrence: US)
  Receive Date: 20250714
  Receipt Date: 20251216
  Transmission Date: 20260117
  Serious: Yes (Hospitalization)
  Sender: NOVARTIS
  Company Number: US-002147023-NVSC2025US110539

PATIENT
  Sex: Male

DRUGS (1)
  1. VANRAFIA [Suspect]
     Active Substance: ATRASENTAN HYDROCHLORIDE
     Indication: Haematuria
     Dosage: 0.75 MG, QD
     Route: 048

REACTIONS (1)
  - Drug hypersensitivity [Unknown]
